FAERS Safety Report 6088703-7 (Version None)
Quarter: 2009Q1

REPORT INFORMATION
  Report Type: 
  Country: None (occurrence: None)
  Receive Date: 20090224
  Receipt Date: 20090216
  Transmission Date: 20090719
  Serious: Yes (Other)
  Sender: FDA-Public Use
  Company Number: JP-ASTRAZENECA-2009AP01241

PATIENT
  Age: 70 Year
  Sex: Male

DRUGS (4)
  1. IRESSA [Suspect]
     Indication: LUNG NEOPLASM MALIGNANT
     Route: 048
  2. HERBESSER [Suspect]
     Indication: ANGINA PECTORIS
     Dosage: DOSE UNKNOWN
     Route: 065
  3. DIGOXIN [Concomitant]
     Indication: ANGINA PECTORIS
     Dosage: DOSE UNKNOWN
     Route: 065
  4. PLETAL [Concomitant]
     Indication: ANGINA PECTORIS
     Dosage: DOSE UNKNOWN
     Route: 065

REACTIONS (1)
  - BRADYCARDIA [None]
